FAERS Safety Report 16766453 (Version 1)
Quarter: 2019Q3

REPORT INFORMATION
  Report Type: Spontaneous
  Country: GB (occurrence: GB)
  Receive Date: 20190903
  Receipt Date: 20190903
  Transmission Date: 20191005
  Serious: Yes (Other)
  Sender: FDA-Public Use
  Company Number: GB-MYLANLABS-2019M1081147

PATIENT
  Age: 39 Year
  Sex: Female
  Weight: 91 kg

DRUGS (9)
  1. BUPRENORPHINE. [Concomitant]
     Active Substance: BUPRENORPHINE
     Dosage: 3 DOSAGE FORM
     Dates: start: 20190129
  2. ARIPIPRAZOLE. [Suspect]
     Active Substance: ARIPIPRAZOLE
     Indication: PRODUCT USED FOR UNKNOWN INDICATION
     Dosage: 15 MILLIGRAM, QD
     Dates: start: 20181227, end: 20190305
  3. OLANZAPINE. [Concomitant]
     Active Substance: OLANZAPINE
     Dosage: 1 DOSAGE FORM, QD
     Dates: start: 20190305
  4. NAPROXEN. [Concomitant]
     Active Substance: NAPROXEN
     Dosage: 3 DOSAGE FORM, QD
     Dates: start: 20190129, end: 20190226
  5. GAVISCON                           /00237601/ [Concomitant]
     Active Substance: ALUMINUM HYDROXIDE\MAGNESIUM CARBONATE
     Dosage: TAKE 2 TO 4 UP TO 4 TIMES/DAY
     Dates: start: 20181227, end: 20190103
  6. MACROGOL [Concomitant]
     Active Substance: POLYETHYLENE GLYCOLS
     Indication: CONSTIPATION
     Dosage: 1-2 DAILY
     Dates: start: 20190205, end: 20190225
  7. ZOLPIDEM [Concomitant]
     Active Substance: ZOLPIDEM TARTRATE
     Dosage: AT NIGHT OCCASIONAL USE ONLY
     Dates: start: 20181227, end: 20190108
  8. IBUPROFEN. [Concomitant]
     Active Substance: IBUPROFEN
     Dosage: 3 DOSAGE FORM, QD
     Dates: start: 20190122, end: 20190130
  9. LANSOPRAZOLE. [Concomitant]
     Active Substance: LANSOPRAZOLE
     Dosage: 1 DOSAGE FORM, QD
     Dates: start: 20190129, end: 20190226

REACTIONS (3)
  - Genitourinary symptom [Unknown]
  - Restless legs syndrome [Recovered/Resolved]
  - Pain in extremity [Unknown]
